FAERS Safety Report 12229789 (Version 2)
Quarter: 2016Q2

REPORT INFORMATION
  Report Type: Spontaneous
  Country: US (occurrence: US)
  Receive Date: 20160401
  Receipt Date: 20160401
  Transmission Date: 20160815
  Serious: No
  Sender: FDA-Public Use
  Company Number: PHEH2016US007557

PATIENT
  Age: 57 Year
  Sex: Female

DRUGS (4)
  1. ESTRADIOL. [Suspect]
     Active Substance: ESTRADIOL
     Indication: APPLICATION SITE DRYNESS
  2. INVOKANA [Concomitant]
     Active Substance: CANAGLIFLOZIN
     Indication: TYPE 2 DIABETES MELLITUS
     Dosage: UNK
     Route: 065
  3. ESTRADIOL. [Suspect]
     Active Substance: ESTRADIOL
     Indication: HORMONE LEVEL ABNORMAL
     Dosage: 0.05 MG, UNK
  4. JANUMET [Concomitant]
     Active Substance: METFORMIN HYDROCHLORIDE\SITAGLIPTIN PHOSPHATE
     Indication: TYPE 2 DIABETES MELLITUS
     Route: 065

REACTIONS (3)
  - Condition aggravated [Unknown]
  - Hot flush [Unknown]
  - Product quality issue [Unknown]
